FAERS Safety Report 14239145 (Version 2)
Quarter: 2017Q4

REPORT INFORMATION
  Report Type: Report from Study
  Country: JP (occurrence: JP)
  Receive Date: 20171130
  Receipt Date: 20171207
  Transmission Date: 20180321
  Serious: Yes (Hospitalization)
  Sender: FDA-Public Use
  Company Number: JP-TEVA-2017-JP-828527

PATIENT
  Age: 60 Year
  Sex: Male
  Weight: 64 kg

DRUGS (26)
  1. ANTEBATE [Concomitant]
     Active Substance: BETAMETHASONE DIPROPIONATE
     Indication: ECZEMA
     Dosage: UNK, AS NEEDED
     Route: 061
     Dates: start: 20151127
  2. DICLOFENAC SODIUM. [Concomitant]
     Active Substance: DICLOFENAC SODIUM
     Indication: OSTEONECROSIS
     Dosage: UNK, AS NEEDED
     Route: 061
     Dates: start: 20170623
  3. NOVORAPID [Concomitant]
     Active Substance: INSULIN ASPART
     Indication: LYMPHOCYTE COUNT DECREASED
     Route: 058
     Dates: start: 20170704
  4. GENTAMICIN SULFATE. [Concomitant]
     Active Substance: GENTAMICIN SULFATE
     Indication: ECZEMA
     Dosage: UNK, UNKNOWN FREQ.
     Route: 061
     Dates: start: 20151127
  5. HIRUDOID                           /00723702/ [Concomitant]
     Active Substance: GLYCOSAMINOGLYCANS
     Indication: DERMATITIS
     Dosage: UNK UNK, AS NEEDED
     Route: 061
  6. CRAVIT [Concomitant]
     Active Substance: LEVOFLOXACIN
     Indication: MEIBOMIANITIS
     Route: 047
  7. AZUNOL                             /00317302/ [Concomitant]
     Indication: ECZEMA
     Dosage: UNK UNK, AS NEEDED
     Route: 061
     Dates: start: 20150319
  8. FULRUBAN [Concomitant]
     Active Substance: FLURBIPROFEN
     Indication: VASCULAR PAIN
  9. NEXIUM [Concomitant]
     Active Substance: ESOMEPRAZOLE MAGNESIUM
     Indication: CHRONIC GASTRITIS
     Route: 048
     Dates: start: 20150410
  10. FLUMETHOLON [Concomitant]
     Active Substance: FLUOROMETHOLONE
     Indication: MEIBOMIANITIS
     Dosage: 0.1 %, AS NEEDED
     Route: 047
  11. FULRUBAN [Concomitant]
     Active Substance: FLURBIPROFEN
     Indication: NEUROPATHY PERIPHERAL
     Route: 061
     Dates: start: 20150322
  12. LOXONIN [Concomitant]
     Active Substance: LOXOPROFEN SODIUM
     Indication: BACK PAIN
     Dosage: UNK UNK, AS NEEDED
     Route: 061
     Dates: start: 20150612
  13. FELBINAC [Concomitant]
     Active Substance: FELBINAC
     Indication: BACK PAIN
     Dosage: UNK, AS NEEDED
     Route: 061
     Dates: start: 20170623
  14. SHAKUYAKUKANZOTO [Concomitant]
     Active Substance: HERBALS
     Indication: MYALGIA
     Route: 048
     Dates: start: 20150626
  15. NOVORAPID [Concomitant]
     Active Substance: INSULIN ASPART
     Indication: DIABETES MELLITUS
     Route: 058
     Dates: start: 20170704
  16. BENDAMUSTINE HYDROCHLORIDE. [Suspect]
     Active Substance: BENDAMUSTINE HYDROCHLORIDE
     Indication: NON-HODGKIN^S LYMPHOMA
     Route: 042
     Dates: start: 20150318, end: 20150807
  17. MAGLAX [Concomitant]
     Active Substance: MAGNESIUM OXIDE
     Indication: CONSTIPATION
     Route: 048
  18. AZUNOL                             /00317302/ [Concomitant]
     Indication: VASCULAR PAIN
  19. LOXONIN [Concomitant]
     Active Substance: LOXOPROFEN SODIUM
     Indication: OSTEONECROSIS
     Route: 061
     Dates: start: 20160906
  20. XYZAL [Concomitant]
     Active Substance: LEVOCETIRIZINE DIHYDROCHLORIDE
     Indication: ECZEMA
     Route: 048
     Dates: start: 20151127
  21. MOHRUS [Concomitant]
     Active Substance: KETOPROFEN
     Indication: BACK PAIN
     Dosage: UNK, AS NEEDED
     Route: 061
     Dates: start: 20150417
  22. LOXOPROFEN [Concomitant]
     Active Substance: LOXOPROFEN
     Indication: MYALGIA
     Route: 048
     Dates: start: 20150626
  23. LANTUS [Concomitant]
     Active Substance: INSULIN GLARGINE
     Indication: DIABETES MELLITUS
     Route: 058
     Dates: start: 20170704
  24. RITUXIMAB. [Suspect]
     Active Substance: RITUXIMAB
     Indication: NON-HODGKIN^S LYMPHOMA
     Route: 042
     Dates: start: 20150318, end: 20150807
  25. SUMILU [Concomitant]
     Active Substance: FELBINAC
     Indication: BACK PAIN
     Route: 061
     Dates: start: 20150315
  26. BROTIZOLAM [Concomitant]
     Active Substance: BROTIZOLAM
     Indication: INSOMNIA
     Dosage: 0.25 MG, ONCE DAILY (IN MORNING)
     Route: 048
     Dates: start: 20150501

REACTIONS (1)
  - Osteonecrosis [Not Recovered/Not Resolved]

NARRATIVE: CASE EVENT DATE: 20171109
